FAERS Safety Report 7686707-1 (Version None)
Quarter: 2011Q3

REPORT INFORMATION
  Report Type: 
  Country: None (occurrence: None)
  Receive Date: 20110816
  Receipt Date: 20110808
  Transmission Date: 20111222
  Serious: Yes (Hospitalization)
  Sender: FDA-Public Use
  Company Number: FR-TEVA-295882ISR

PATIENT
  Age: 53 Year
  Sex: Female

DRUGS (4)
  1. FLUOXETINE [Concomitant]
  2. METHOTREXATE [Suspect]
     Indication: PRECURSOR T-LYMPHOBLASTIC LYMPHOMA/LEUKAEMIA
     Dosage: OVER 24 HOURS
     Route: 041
  3. VALACICLOVIR [Concomitant]
  4. PANTOPRAZOLE [Interacting]
     Dosage: 20 MILLIGRAM;

REACTIONS (2)
  - DRUG INTERACTION [None]
  - RENAL FAILURE ACUTE [None]
